FAERS Safety Report 14910298 (Version 1)
Quarter: 2018Q2

REPORT INFORMATION
  Report Type: Report from Study
  Country: None (occurrence: US)
  Receive Date: 20180517
  Receipt Date: 20180517
  Transmission Date: 20180711
  Serious: Yes (Other)
  Sender: FDA-Public Use
  Company Number: US-ABBVIE-18P-163-2353173-00

PATIENT
  Age: 78 Year
  Sex: Male

DRUGS (2)
  1. VENCLEXTA [Suspect]
     Active Substance: VENETOCLAX
     Indication: REMISSION NOT ACHIEVED
     Route: 048
     Dates: start: 201803
  2. VENCLEXTA [Suspect]
     Active Substance: VENETOCLAX
     Indication: PLASMA CELL LEUKAEMIA

REACTIONS (5)
  - Infection [Unknown]
  - Chills [Unknown]
  - Intentional product use issue [Unknown]
  - Off label use [Unknown]
  - Pyrexia [Unknown]

NARRATIVE: CASE EVENT DATE: 20180507
